FAERS Safety Report 16920217 (Version 1)
Quarter: 2019Q4

REPORT INFORMATION
  Report Type: Spontaneous
  Country: IR (occurrence: IR)
  Receive Date: 20191015
  Receipt Date: 20191015
  Transmission Date: 20200122
  Serious: Yes (Hospitalization)
  Sender: FDA-Public Use
  Company Number: NVSC2019IR001917

PATIENT
  Sex: Female

DRUGS (1)
  1. ACLASTA [Suspect]
     Active Substance: ZOLEDRONIC ACID
     Indication: OSTEOPOROTIC FRACTURE
     Dosage: UNK UNK, Q12MO
     Route: 065
     Dates: start: 20190927, end: 20190927

REACTIONS (2)
  - Dysphagia [Unknown]
  - Depressed level of consciousness [Recovering/Resolving]
